FAERS Safety Report 5840418-3 (Version None)
Quarter: 2008Q3

REPORT INFORMATION
  Report Type: 
  Country: None (occurrence: None)
  Receive Date: 20080811
  Receipt Date: 20080801
  Transmission Date: 20090109
  Serious: Yes (Other)
  Sender: FDA-Public Use
  Company Number: HQWYE103309AUG04

PATIENT
  Sex: Female
  Weight: 62.65 kg

DRUGS (2)
  1. PREMARIN [Suspect]
     Indication: MENOPAUSAL SYMPTOMS
  2. MEDROXYPROGESTERONE [Suspect]

REACTIONS (6)
  - BREAST CANCER METASTATIC [None]
  - LEUKOCYTOSIS [None]
  - METASTASES TO BONE [None]
  - NEUTROPENIC COLITIS [None]
  - PNEUMONIA KLEBSIELLA [None]
  - SEPSIS [None]
